FAERS Safety Report 6137153-3 (Version None)
Quarter: 2009Q1

REPORT INFORMATION
  Report Type: 
  Country: None (occurrence: None)
  Receive Date: 20090330
  Receipt Date: 20090319
  Transmission Date: 20090719
  Serious: Yes (Life-Threatening)
  Sender: FDA-Public Use
  Company Number: JP-PFIZER INC-2009175561

PATIENT

DRUGS (38)
  1. LIPITOR [Suspect]
     Indication: HYPERLIPIDAEMIA
     Dosage: 10 MG, 1X/DAY
     Route: 048
     Dates: start: 20081120, end: 20090103
  2. CYTOTEC [Suspect]
     Indication: DUODENAL ULCER
     Dosage: 200 UG, 3X/DAY
     Route: 048
     Dates: start: 20080718, end: 20080925
  3. CYTOTEC [Suspect]
     Dosage: 200 UG, AS NEEDED
     Route: 048
     Dates: start: 20081002, end: 20081002
  4. CYTOTEC [Suspect]
     Dosage: 200 UG, AS NEEDED
     Route: 048
     Dates: start: 20081023, end: 20081023
  5. CYTOTEC [Suspect]
     Dosage: 200 UG, AS NEEDED
     Route: 048
     Dates: start: 20081120, end: 20081120
  6. ALENDRONATE SODIUM [Suspect]
     Indication: SPINAL COMPRESSION FRACTURE
     Dosage: 5 MG, 1X/DAY
     Route: 048
     Dates: start: 20080711, end: 20090104
  7. ALENDRONATE SODIUM [Suspect]
     Dosage: 5 MG, 1X/DAY
     Route: 048
     Dates: start: 20090208
  8. LOXONIN [Suspect]
     Indication: SPINAL COMPRESSION FRACTURE
     Dosage: 60 MG, AS NEEDED
     Route: 048
     Dates: start: 20080604, end: 20080604
  9. LOXONIN [Suspect]
     Dosage: 60 MG, 3X/DAY
     Route: 048
     Dates: start: 20080707, end: 20080814
  10. LOXONIN [Suspect]
     Dosage: 60 MG, AS NEEDED
     Route: 048
     Dates: start: 20081002, end: 20081002
  11. LOXONIN [Suspect]
     Dosage: 60 MG, AS NEEDED
     Route: 048
     Dates: start: 20081023, end: 20081023
  12. LOXONIN [Suspect]
     Dosage: 60 MG, AS NEEDED
     Route: 048
     Dates: start: 20081120, end: 20081120
  13. TAKEPRON [Suspect]
     Indication: DUODENAL ULCER
     Dosage: 15 MG, 1X/DAY
     Route: 048
     Dates: start: 20080704, end: 20080814
  14. TAKEPRON [Suspect]
     Dosage: 15 MG, 1X/DAY
     Route: 048
     Dates: start: 20080926, end: 20081217
  15. LANSOPRAZOLE [Suspect]
     Indication: DUODENAL ULCER
     Dosage: 15 MG, 1X/DAY
     Route: 048
     Dates: start: 20080915, end: 20080925
  16. LANSOPRAZOLE [Suspect]
     Dosage: 15 MG, 1X/DAY
     Route: 048
     Dates: start: 20081218, end: 20090104
  17. LOXOPROFEN SODIUM [Suspect]
     Indication: OSTEOPOROSIS
     Dosage: 60 MG, 3X/DAY
     Route: 048
     Dates: start: 20080816, end: 20080925
  18. UNIPHYL [Suspect]
     Indication: ASTHMA
     Dosage: 300 MG, 2X/DAY
     Route: 048
     Dates: start: 20080704, end: 20090104
  19. GARENOXACIN MESYLATE [Suspect]
     Indication: BRONCHITIS
     Dosage: 400 MG, 1X/DAY
     Route: 048
     Dates: start: 20080121, end: 20080127
  20. GARENOXACIN MESYLATE [Suspect]
     Dosage: 400 MG, 1X/DAY
     Route: 048
     Dates: start: 20080424, end: 20080430
  21. GARENOXACIN MESYLATE [Suspect]
     Dosage: 400 MG, 1X/DAY
     Route: 048
     Dates: start: 20080602, end: 20080608
  22. GARENOXACIN MESYLATE [Suspect]
     Dosage: 400 MG, 1X/DAY
     Route: 048
     Dates: start: 20081215, end: 20081221
  23. GARENOXACIN MESYLATE [Suspect]
     Dosage: 400 MG, 1X/DAY
     Route: 048
     Dates: start: 20081231, end: 20090104
  24. SUPLATAST TOSILATE [Concomitant]
     Dosage: UNK
     Dates: start: 20080316, end: 20090104
  25. BLOPRESS [Concomitant]
     Dosage: UNK
     Dates: start: 20080704, end: 20090104
  26. MONTELUKAST SODIUM [Concomitant]
     Dosage: UNK
     Dates: start: 20080704, end: 20090104
  27. MUCODYNE [Concomitant]
     Dosage: UNK
     Dates: start: 20011105, end: 20090104
  28. MUCOSOLVAN [Concomitant]
     Dosage: UNK
     Dates: start: 20080121, end: 20090104
  29. PREDONINE [Concomitant]
     Dosage: UNK
     Dates: start: 19870514, end: 20090104
  30. ALFAROL [Concomitant]
     Dosage: UNK
     Dates: start: 20011105, end: 20090104
  31. ERYTHROCIN [Concomitant]
     Dosage: UNK
     Dates: start: 20050316, end: 20090104
  32. LASIX [Concomitant]
     Dosage: UNK
     Dates: start: 20080611, end: 20080620
  33. HERBESSER R [Concomitant]
     Dosage: UNK
     Dates: start: 20070409, end: 20090104
  34. SALMETEROL XINAFOATE [Concomitant]
     Dosage: UNK
     Dates: start: 20080704, end: 20090104
  35. QVAR 40 [Concomitant]
     Dosage: UNK
     Dates: start: 20080926, end: 20090104
  36. SAXIZON [Concomitant]
     Dosage: UNK
     Dates: start: 20080115, end: 20081226
  37. SAXIZON [Concomitant]
     Dosage: UNK
     Dates: start: 20081227, end: 20090104
  38. CEFOTIAM HYDROCHLORIDE [Concomitant]
     Dosage: UNK
     Dates: start: 20090103, end: 20090104

REACTIONS (5)
  - ABDOMINAL PAIN UPPER [None]
  - HEADACHE [None]
  - HEPATIC FUNCTION ABNORMAL [None]
  - MYALGIA [None]
  - PYREXIA [None]
